FAERS Safety Report 18435181 (Version 1)
Quarter: 2020Q4

REPORT INFORMATION
  Report Type: Spontaneous
  Country: ES (occurrence: ES)
  Receive Date: 20201028
  Receipt Date: 20201028
  Transmission Date: 20210114
  Serious: Yes (Life-Threatening, Hospitalization, Disabling)
  Sender: FDA-Public Use
  Company Number: NVSC2020ES289020

PATIENT
  Age: 37 Year
  Sex: Female
  Weight: 57 kg

DRUGS (4)
  1. QUETIAPINA ALTER [Concomitant]
     Active Substance: QUETIAPINE FUMARATE
     Indication: OBSESSIVE-COMPULSIVE DISORDER
     Dosage: 75 MG, QD (75 MG DIARIOS)
     Route: 065
     Dates: start: 20200701, end: 20200715
  2. OLANZAPINA [Suspect]
     Active Substance: OLANZAPINE
     Indication: OBSESSIVE-COMPULSIVE DISORDER
     Dosage: 5 MG, QD (5MG DIARIOS)
     Route: 048
     Dates: start: 20200715, end: 20200727
  3. ANAFRANIL [Suspect]
     Active Substance: CLOMIPRAMINE HYDROCHLORIDE
     Indication: OBSESSIVE-COMPULSIVE DISORDER
     Dosage: 262.5 MG, QD (1-15 JULIO 2020 300 MG DE)
     Route: 048
     Dates: start: 20200715, end: 20200721
  4. PREGABALINA [Suspect]
     Active Substance: PREGABALIN
     Indication: OBSESSIVE-COMPULSIVE DISORDER
     Dosage: 75 MG, QD (75 MG DIARIOS)
     Route: 048
     Dates: start: 20200715, end: 20200727

REACTIONS (1)
  - Syncope [Recovered/Resolved]

NARRATIVE: CASE EVENT DATE: 20200721
